FAERS Safety Report 14456564 (Version 6)
Quarter: 2019Q1

REPORT INFORMATION
  Report Type: Spontaneous
  Country: US (occurrence: US)
  Receive Date: 20180130
  Receipt Date: 20190219
  Transmission Date: 20190417
  Serious: No
  Sender: FDA-Public Use
  Company Number: US-BRISTOL-MYERS SQUIBB COMPANY-BMS-2018-007948

PATIENT
  Sex: Female
  Weight: 75.74 kg

DRUGS (2)
  1. ORENCIA [Suspect]
     Active Substance: ABATACEPT
     Indication: PRODUCT USED FOR UNKNOWN INDICATION
     Dosage: 250 MG, Q4WK
     Route: 042
     Dates: start: 201507
  2. ORENCIA [Suspect]
     Active Substance: ABATACEPT
     Indication: RHEUMATOID ARTHRITIS
     Dosage: 750 MG, Q4WK
     Route: 042
     Dates: start: 201507

REACTIONS (7)
  - Erythema [Unknown]
  - Abdominal pain [Unknown]
  - Blood urine present [Unknown]
  - Malaise [Unknown]
  - Feeling jittery [Unknown]
  - Rash [Unknown]
  - Swelling face [Unknown]
